FAERS Safety Report 9312912 (Version 1)
Quarter: 2013Q2

REPORT INFORMATION
  Report Type: Spontaneous
  Country: US (occurrence: US)
  Receive Date: 20130528
  Receipt Date: 20130528
  Transmission Date: 20140414
  Serious: No
  Sender: FDA-Public Use
  Company Number: US-ABBOTT-13P-163-1068874-00

PATIENT
  Age: 72 Year
  Sex: Male

DRUGS (4)
  1. ANDROGEL [Suspect]
     Indication: BLOOD TESTOSTERONE DECREASED
     Dosage: 1 PUMP ON EACH SHOULDER ONCE EVERY MORNING
     Dates: start: 20121031, end: 20130301
  2. UNKNOWN DIABETIC MEDICINE [Concomitant]
     Indication: DIABETES MELLITUS
  3. UNKNOWN HIGH BLOOD PRESSURE MEDICINE [Concomitant]
     Indication: HYPERTENSION
  4. UNKNOWN HIGH CHOLESTEROL MEDICINE [Concomitant]
     Indication: BLOOD CHOLESTEROL INCREASED

REACTIONS (1)
  - Wrong drug administered [Unknown]
